FAERS Safety Report 9213726 (Version 1)
Quarter: 2013Q2

REPORT INFORMATION
  Report Type: Spontaneous
  Country: US (occurrence: US)
  Receive Date: 20130405
  Receipt Date: 20130405
  Transmission Date: 20140414
  Serious: Yes (Hospitalization)
  Sender: FDA-Public Use
  Company Number: US-PFIZER INC-2013104697

PATIENT
  Age: 62 Year
  Sex: Male
  Weight: 78.01 kg

DRUGS (9)
  1. FLAGYL [Suspect]
     Dosage: UNK
     Dates: start: 201302
  2. HUMIRA [Suspect]
     Indication: RHEUMATOID ARTHRITIS
     Dosage: 40 MG/DAY
     Dates: start: 2008, end: 2009
  3. HUMIRA [Suspect]
     Dosage: 40 MG/DAY
     Dates: start: 201212
  4. REMICADE [Suspect]
     Dosage: UNK
     Route: 042
     Dates: start: 2012, end: 201201
  5. METHOTREXATE [Concomitant]
     Dosage: UNK
  6. BUDESONIDE [Concomitant]
     Dosage: UNK
  7. LISINOPRIL [Concomitant]
     Indication: HYPERTENSION
     Dosage: UNK
  8. PRAVASTATIN [Concomitant]
     Dosage: UNK
  9. FOLIC ACID [Concomitant]
     Dosage: UNK

REACTIONS (4)
  - Renal impairment [Recovered/Resolved]
  - Lung infection [Recovered/Resolved]
  - Crohn^s disease [Recovered/Resolved]
  - Chromaturia [Recovered/Resolved]
